FAERS Safety Report 7803929-7 (Version None)
Quarter: 2011Q4

REPORT INFORMATION
  Report Type: 
  Country: None (occurrence: None)
  Receive Date: 20111010
  Receipt Date: 20111004
  Transmission Date: 20120403
  Serious: Yes (Other)
  Sender: FDA-Public Use
  Company Number: US-PFIZER INC-2011214179

PATIENT
  Sex: Female
  Weight: 79.365 kg

DRUGS (6)
  1. TOVIAZ [Suspect]
     Indication: POLLAKIURIA
     Dosage: 4 MG, UNK
     Route: 048
     Dates: start: 20110309
  2. VITAMIN TAB [Concomitant]
     Dosage: UNK
     Route: 048
  3. TOVIAZ [Suspect]
     Dosage: 8 MG, DAILY
     Route: 048
     Dates: start: 20110524, end: 20110911
  4. LYRICA [Concomitant]
     Indication: FIBROMYALGIA
  5. LISINOPRIL AND HYDROCHLOROTHIAZIDE [Concomitant]
     Dosage: LISINOPRIL 10 MG/HYDROCHLOROTHIAZIDE 12.5MG, 2 TABLETS TWICE DAILY
  6. LYRICA [Concomitant]
     Indication: NEUROPATHY PERIPHERAL
     Dosage: 200 MG, 3X/DAY
     Route: 048

REACTIONS (2)
  - NOCTURIA [None]
  - URINARY INCONTINENCE [None]
